FAERS Safety Report 7748260-3 (Version None)
Quarter: 2011Q3

REPORT INFORMATION
  Report Type: 
  Country: None (occurrence: None)
  Receive Date: 20110913
  Receipt Date: 20110831
  Transmission Date: 20111222
  Serious: Yes (Other)
  Sender: FDA-Public Use
  Company Number: FR-MYLANLABS-2011S1018617

PATIENT
  Age: 79 Year
  Sex: Female

DRUGS (3)
  1. SPIRONOLACTONE [Suspect]
     Dosage: LONG TERM
     Route: 065
  2. OMEPRAZOLE [Suspect]
     Dosage: LONG TERM
     Route: 065
  3. FUROSEMIDE [Suspect]
     Dosage: LONG TERM
     Route: 065

REACTIONS (2)
  - TRANSIENT ISCHAEMIC ATTACK [None]
  - HYPONATRAEMIA [None]
